FAERS Safety Report 4430563-1 (Version None)
Quarter: 2004Q3

REPORT INFORMATION
  Report Type: 
  Country: None (occurrence: None)
  Receive Date: 20040818
  Receipt Date: 20040802
  Transmission Date: 20050211
  Serious: Yes (Hospitalization)
  Sender: FDA-Public Use
  Company Number: DSA_24797_2004

PATIENT
  Sex: Male

DRUGS (3)
  1. DILTIAZEM [Suspect]
     Dosage: DF DAILY
  2. LIPITOR [Suspect]
     Indication: HYPERLIPIDAEMIA
     Dosage: 10 MG PO
     Route: 048
  3. SIMVASTATIN [Suspect]
     Indication: HYPERLIPIDAEMIA
     Dosage: DF DAILY

REACTIONS (2)
  - HAEMATURIA [None]
  - RHABDOMYOLYSIS [None]
